FAERS Safety Report 5635970-7 (Version None)
Quarter: 2008Q1

REPORT INFORMATION
  Report Type: 
  Country: None (occurrence: None)
  Receive Date: 20080224
  Receipt Date: 20080212
  Transmission Date: 20080703
  Serious: Yes (Hospitalization, Other)
  Sender: FDA-Public Use
  Company Number: PHEH2006US03543

PATIENT
  Age: 70 Year
  Sex: Female
  Weight: 81.632 kg

DRUGS (23)
  1. AREDIA [Suspect]
     Dosage: 90 MG OVER 4 HOURS
     Route: 042
  2. AREDIA [Suspect]
     Dosage: 60 MG, UNK
     Route: 042
     Dates: start: 20060210
  3. AREDIA [Suspect]
     Dosage: EVERY 2 MONTHS
     Dates: start: 20061215
  4. PREDNISONE TAB [Concomitant]
     Indication: MULTIPLE MYELOMA
     Dosage: 5 MG, UNK
     Route: 048
  5. ATIVAN [Concomitant]
     Indication: ANXIETY
  6. EFFEXOR [Concomitant]
  7. PREMPHASE 14/14 [Concomitant]
  8. NEURONTIN [Concomitant]
  9. ZOFRAN [Concomitant]
  10. PREMARIN [Concomitant]
  11. ZOLOFT [Concomitant]
  12. ANZEMET [Concomitant]
  13. DURAGESIC-100 [Concomitant]
     Indication: PAIN IN JAW
     Dosage: UNK, Q48H
  14. ARANESP [Concomitant]
  15. VALIUM [Concomitant]
  16. LIMBITROL [Concomitant]
  17. REGLAN [Concomitant]
  18. ZANTAC 150 [Concomitant]
  19. MOBIC [Concomitant]
  20. LASIX [Concomitant]
  21. KLOR-CON [Concomitant]
  22. IMMUNE GLOBULIN INTRAVENOUS (HUMAN) [Concomitant]
     Route: 042
  23. ZOMETA [Suspect]

REACTIONS (41)
  - ANAEMIA OF CHRONIC DISEASE [None]
  - ANAPHYLACTIC REACTION [None]
  - ANGIOEDEMA [None]
  - BIOPSY [None]
  - BIOPSY LUNG [None]
  - BONE DISORDER [None]
  - BONE NEOPLASM MALIGNANT [None]
  - BRONCHIECTASIS [None]
  - DECREASED APPETITE [None]
  - DEEP VEIN THROMBOSIS [None]
  - DENTAL CARIES [None]
  - DENTAL DISCOMFORT [None]
  - DENTAL OPERATION [None]
  - DENTURE WEARER [None]
  - DIARRHOEA [None]
  - DYSPNOEA EXERTIONAL [None]
  - GASTROOESOPHAGEAL REFLUX DISEASE [None]
  - GINGIVAL INFECTION [None]
  - HEADACHE [None]
  - HISTOPLASMOSIS [None]
  - HYPERTENSION [None]
  - HYPOTENSION [None]
  - INTERSTITIAL LUNG DISEASE [None]
  - JAW DISORDER [None]
  - MOUTH ULCERATION [None]
  - MULTIPLE MYELOMA [None]
  - NAUSEA [None]
  - OSTEOMYELITIS [None]
  - OSTEONECROSIS [None]
  - PAIN IN JAW [None]
  - PHLEBITIS [None]
  - PLEURAL FIBROSIS [None]
  - PNEUMONIA [None]
  - PYREXIA [None]
  - RENAL FAILURE ACUTE [None]
  - SPINAL OSTEOARTHRITIS [None]
  - TOOTH EXTRACTION [None]
  - ULCER [None]
  - URINARY INCONTINENCE [None]
  - VOMITING [None]
  - WEIGHT DECREASED [None]
